FAERS Safety Report 20201457 (Version 3)
Quarter: 2022Q1

REPORT INFORMATION
  Report Type: Report from Study
  Country: AT (occurrence: AT)
  Receive Date: 20211217
  Receipt Date: 20220120
  Transmission Date: 20220423
  Serious: Yes (Hospitalization)
  Sender: FDA-Public Use
  Company Number: AT-MORPHOSYS US-2021-MOR001374-AT

PATIENT

DRUGS (45)
  1. TAFASITAMAB [Suspect]
     Active Substance: TAFASITAMAB
     Indication: Diffuse large B-cell lymphoma
     Dosage: 1140 MILLIGRAM ONCE/WEEK
     Route: 042
     Dates: start: 20210810
  2. TAFASITAMAB [Suspect]
     Active Substance: TAFASITAMAB
     Dosage: 900 MILLIGRAM ONCE A WEEK
     Route: 042
     Dates: start: 20211012, end: 20211110
  3. LENALIDOMIDE [Suspect]
     Active Substance: LENALIDOMIDE
     Indication: Diffuse large B-cell lymphoma
     Dosage: 25 MILLIGRAM ONCE/DAY DAY1 TO 10
     Route: 048
     Dates: start: 20210811
  4. LENALIDOMIDE [Suspect]
     Active Substance: LENALIDOMIDE
     Dosage: 20 MILLIGRAM ONCE A DAY DAYS 1 TO 10
     Route: 048
     Dates: start: 20211016, end: 20211017
  5. CYCLOPHOSPHAMIDE\DOXORUBICIN\PREDNISONE\RITUXIMAB\VINCRISTINE [Suspect]
     Active Substance: CYCLOPHOSPHAMIDE\DOXORUBICIN\PREDNISONE\RITUXIMAB\VINCRISTINE
     Indication: Diffuse large B-cell lymphoma
     Dosage: UNK
     Route: 042
     Dates: start: 20210810
  6. CYCLOPHOSPHAMIDE\DOXORUBICIN\PREDNISONE\RITUXIMAB\VINCRISTINE [Suspect]
     Active Substance: CYCLOPHOSPHAMIDE\DOXORUBICIN\PREDNISONE\RITUXIMAB\VINCRISTINE
     Dosage: UNK
     Route: 042
     Dates: start: 20211012, end: 20211110
  7. PANTOPRAZOLE SODIUM [Concomitant]
     Active Substance: PANTOPRAZOLE SODIUM
     Indication: Prophylaxis
     Dosage: 40 MILLIGRAM, QD
     Route: 048
     Dates: start: 20210821
  8. HYDROMORPHONE HYDROCHLORIDE [Concomitant]
     Active Substance: HYDROMORPHONE HYDROCHLORIDE
     Indication: Diffuse large B-cell lymphoma
     Dosage: 1.3 MILLIGRAM, PRN
     Route: 048
     Dates: start: 20210825
  9. HYDROMORPHONE HYDROCHLORIDE [Concomitant]
     Active Substance: HYDROMORPHONE HYDROCHLORIDE
     Dosage: 2 MILLIGRAM, BID
     Route: 048
     Dates: start: 20211027
  10. BERODUALIN [Concomitant]
     Indication: Asthma
     Dosage: 20 DROP, QID
     Route: 048
     Dates: start: 20211020
  11. CHOLECALCIFEROL [Concomitant]
     Active Substance: CHOLECALCIFEROL
     Indication: Prophylaxis
     Dosage: 35 DROP ONCE A WEEK
     Route: 048
     Dates: start: 20211022
  12. AMLODIPINE [Concomitant]
     Active Substance: AMLODIPINE BESYLATE
     Indication: Hypertension
     Dosage: 10 MILLIGRAM, BID
     Route: 048
     Dates: start: 20211024
  13. BISOPROLOL FUMARATE [Concomitant]
     Active Substance: BISOPROLOL FUMARATE
     Indication: Hypertension
     Dosage: 2.5 MILLIGRAM, BID
     Route: 048
     Dates: start: 20211024
  14. VALACYCLOVIR HYDROCHLORIDE [Concomitant]
     Active Substance: VALACYCLOVIR HYDROCHLORIDE
     Indication: Diffuse large B-cell lymphoma
     Dosage: 500 MILLIGRAM, BID
     Route: 048
     Dates: start: 20211024
  15. VALACYCLOVIR HYDROCHLORIDE [Concomitant]
     Active Substance: VALACYCLOVIR HYDROCHLORIDE
     Dosage: 500 MILLIGRAM, ONCE
     Route: 048
     Dates: start: 20211112, end: 20211112
  16. VALACYCLOVIR HYDROCHLORIDE [Concomitant]
     Active Substance: VALACYCLOVIR HYDROCHLORIDE
     Dosage: 500 MILLIGRAM, QD
     Route: 048
     Dates: start: 20211127
  17. SULFAMETROLE\TRIMETHOPRIM [Concomitant]
     Active Substance: SULFAMETROLE\TRIMETHOPRIM
     Indication: Pneumonia
     Dosage: 1 TABLET TIS (3 TIMES A WEEK)
     Route: 048
     Dates: start: 20211025
  18. SULFAMETROLE\TRIMETHOPRIM [Concomitant]
     Active Substance: SULFAMETROLE\TRIMETHOPRIM
     Indication: Diffuse large B-cell lymphoma
     Dosage: 1 TABLET TIS (3 TIMES A WEEK)
     Route: 048
     Dates: start: 20211127
  19. RAMIPRIL [Concomitant]
     Active Substance: RAMIPRIL
     Indication: Hypertension
     Dosage: 5 MILLIGRAM, QD
     Route: 048
     Dates: start: 20211025
  20. QUETIAPINE FUMARATE [Concomitant]
     Active Substance: QUETIAPINE FUMARATE
     Indication: Depression
     Dosage: 25 MILLIGRAM, QD
     Route: 048
     Dates: start: 20211026
  21. ASPIRIN [Concomitant]
     Active Substance: ASPIRIN
     Indication: Thrombosis prophylaxis
     Dosage: 100 MILLIGRAM, QD
     Route: 048
     Dates: start: 20211027
  22. ASPIRIN [Concomitant]
     Active Substance: ASPIRIN
     Indication: Nervous system disorder
  23. ONDANSETRON [Concomitant]
     Active Substance: ONDANSETRON
     Indication: Prophylaxis
     Dosage: 8 MILLIGRAM, PRN
     Route: 048
     Dates: start: 20211027
  24. METOCLOPRAMIDE HYDROCHLORIDE [Concomitant]
     Active Substance: METOCLOPRAMIDE HYDROCHLORIDE
     Indication: Prophylaxis
     Dosage: 1 TABLET, PRN
     Route: 048
     Dates: start: 20211027
  25. METOCLOPRAMIDE HYDROCHLORIDE [Concomitant]
     Active Substance: METOCLOPRAMIDE HYDROCHLORIDE
     Indication: Nausea
     Dosage: 1 APPLICATION  ONCE
     Route: 042
     Dates: start: 20211108, end: 20211108
  26. POLYETHYLENE GLYCOL 3350\POTASSIUM CHLORIDE\SODIUM BICARBONATE\SODIUM [Concomitant]
     Active Substance: POLYETHYLENE GLYCOL 3350\POTASSIUM CHLORIDE\SODIUM BICARBONATE\SODIUM CHLORIDE
     Indication: Constipation
     Dosage: 1 APPLICATION, PRN
     Route: 048
     Dates: start: 20211027
  27. SERETIDE [Concomitant]
     Active Substance: FLUTICASONE PROPIONATE\SALMETEROL XINAFOATE
     Indication: Asthma
     Dosage: 1 APPLICATION, BID
     Route: 055
     Dates: start: 20211031
  28. SERETIDE [Concomitant]
     Active Substance: FLUTICASONE PROPIONATE\SALMETEROL XINAFOATE
     Dosage: 1 APPLICATION, BID
     Route: 055
     Dates: start: 20211127
  29. LACTULOSE [Concomitant]
     Active Substance: LACTULOSE
     Indication: Constipation
     Dosage: 1-2 TABLESPOON, PRN
     Route: 048
     Dates: start: 20210801
  30. GLANDOMED [Concomitant]
     Indication: Prophylaxis
     Dosage: 1 APPLICATION, PRN
     Route: 048
     Dates: start: 20210803
  31. VENDAL [MORPHINE SULFATE] [Concomitant]
     Indication: Abdominal pain
     Dosage: 5 MILLIGRAM
     Route: 058
     Dates: start: 20211109, end: 20211109
  32. LACTATED RINGERS SOLUTION [Concomitant]
     Active Substance: CALCIUM CHLORIDE\POTASSIUM CHLORIDE\SODIUM CHLORIDE\SODIUM LACTATE
     Indication: Neutropenic sepsis
     Dosage: 1000 MILLILITER, ONCE
     Route: 042
     Dates: start: 20211109, end: 20211109
  33. ACETAMINOPHEN [Concomitant]
     Active Substance: ACETAMINOPHEN
     Indication: Prophylaxis
     Dosage: 1000 MILLIGRAM, ONCE
     Route: 048
     Dates: start: 20211109, end: 20211109
  34. ACETAMINOPHEN [Concomitant]
     Active Substance: ACETAMINOPHEN
     Indication: Neutropenic sepsis
     Dosage: 1 GRAM, PRN
     Route: 042
     Dates: start: 20211109, end: 20211126
  35. ACETAMINOPHEN [Concomitant]
     Active Substance: ACETAMINOPHEN
     Indication: Pneumonia
  36. ACETAMINOPHEN [Concomitant]
     Active Substance: ACETAMINOPHEN
     Indication: Chest pain
  37. LECICARBON [POTASSIUM TARTRATE;SODIUM BICARBONATE] [Concomitant]
     Indication: Constipation
     Dosage: 1  SUPPOSITORY ONCE
     Route: 054
     Dates: start: 20211109, end: 20211109
  38. CAFEDRINE HYDROCHLORIDE\THEODRENALINE [Concomitant]
     Active Substance: CAFEDRINE HYDROCHLORIDE\THEODRENALINE
     Indication: Hypotension
     Dosage: 0.5 MILLILITER, ONCE
     Route: 042
     Dates: start: 20211109, end: 20211109
  39. LEVOFLOXACIN [Concomitant]
     Active Substance: LEVOFLOXACIN
     Indication: Prophylaxis
     Dosage: 40 IU, QD
     Route: 058
     Dates: start: 20211109, end: 20211112
  40. SODIUM CHLORIDE [Concomitant]
     Active Substance: SODIUM CHLORIDE
     Indication: Neutropenic sepsis
     Dosage: 1 APPLICATION, PRN
     Route: 042
     Dates: start: 20211109, end: 20211112
  41. TROMMCARDIN [Concomitant]
     Indication: Neutropenic sepsis
     Dosage: 1 APPLICATION ONCE
     Route: 042
     Dates: start: 20211110, end: 20211111
  42. KLYSMOL [Concomitant]
     Indication: Constipation
     Dosage: 1 APPLICATION ONCE
     Route: 054
     Dates: start: 20211110, end: 20211110
  43. AMINO ACIDS\DEXTROSE\ELECTROLYTES NOS\SOYBEAN OIL [Concomitant]
     Active Substance: AMINO ACIDS\DEXTROSE\ELECTROLYTES NOS\SOYBEAN OIL
     Indication: Prophylaxis
     Dosage: 1 APPLICATION, PRN
     Route: 042
     Dates: start: 20211111, end: 20211118
  44. RESOURCE PROTEIN [NUTRIENTS NOS] [Concomitant]
     Indication: Prophylaxis
     Dosage: 200 MILLILITER ONCE
     Route: 048
     Dates: start: 20211110, end: 20211110
  45. DEXPANTHENOL [Concomitant]
     Active Substance: DEXPANTHENOL
     Indication: Dermatitis contact
     Dosage: 1 APPLICATION PRN
     Route: 061
     Dates: start: 20211111, end: 20211112

REACTIONS (2)
  - Neutropenic sepsis [Recovered/Resolved]
  - Pneumonia [Recovered/Resolved]

NARRATIVE: CASE EVENT DATE: 20211108
